FAERS Safety Report 4439713-4 (Version None)
Quarter: 2004Q3

REPORT INFORMATION
  Report Type: 
  Country: None (occurrence: None)
  Receive Date: 20040831
  Receipt Date: 20040816
  Transmission Date: 20050211
  Serious: Yes (Hospitalization, Other)
  Sender: FDA-Public Use
  Company Number: 2003-05463

PATIENT
  Age: 53 Year
  Sex: Male
  Weight: 70.3075 kg

DRUGS (13)
  1. TENOFOVIR DF (TENOFOVIR DISOPROXIL FUMARATE) [Suspect]
     Indication: HIV INFECTION
     Dosage: 300 MG, ONCE A DAY, ORAL
     Route: 048
     Dates: start: 20030108
  2. RITONAVIR [Concomitant]
  3. SAQUINAVIR [Concomitant]
  4. AMPRENAVIR (AMPRENAVIR) [Concomitant]
  5. LAMIVUDINE (LAMIVUDINE) [Concomitant]
  6. ABACAVIR (ABACAVIR) [Concomitant]
  7. GABAPENTIN [Concomitant]
  8. TESTOSTERONE [Concomitant]
  9. LITHIUM CARBONATE [Concomitant]
  10. ACYCLOVIR [Concomitant]
  11. WELLBUTRIN [Concomitant]
  12. RESTORIL [Concomitant]
  13. ZYPREXA [Concomitant]

REACTIONS (4)
  - CORONARY ARTERY DISEASE [None]
  - DILATATION ATRIAL [None]
  - ELECTROCARDIOGRAM QT PROLONGED [None]
  - MYOCARDIAL INFARCTION [None]
